FAERS Safety Report 23642016 (Version 1)
Quarter: 2024Q1

REPORT INFORMATION
  Report Type: Spontaneous
  Country: UY (occurrence: UY)
  Receive Date: 20240318
  Receipt Date: 20240318
  Transmission Date: 20240410
  Serious: Yes (Other)
  Sender: FDA-Public Use
  Company Number: UY-STRIDES ARCOLAB LIMITED-2024SP003045

PATIENT
  Age: 50 Year
  Sex: Male

DRUGS (16)
  1. MYCOPHENOLATE MOFETIL [Interacting]
     Active Substance: MYCOPHENOLATE MOFETIL
     Indication: Immunosuppressant drug therapy
     Dosage: 1 GRAM, EVERY 12 HRS
     Route: 065
  2. MYCOPHENOLATE MOFETIL [Interacting]
     Active Substance: MYCOPHENOLATE MOFETIL
     Indication: Renal transplant
  3. CYCLOSPORINE [Interacting]
     Active Substance: CYCLOSPORINE
     Indication: Immunosuppressant drug therapy
     Dosage: 50 MILLIGRAM, AT 8 AM
     Route: 065
  4. CYCLOSPORINE [Interacting]
     Active Substance: CYCLOSPORINE
     Indication: Renal transplant
     Dosage: 75 MILLIGRAM, AT 8 PM
     Route: 065
  5. CYCLOSPORINE [Interacting]
     Active Substance: CYCLOSPORINE
     Dosage: UNK, (DOSE INCREASED)
     Route: 065
  6. PREDNISOLONE [Suspect]
     Active Substance: PREDNISOLONE
     Indication: Immunosuppressant drug therapy
     Dosage: 5 MILLIGRAM, PER DAY
     Route: 065
  7. PREDNISOLONE [Suspect]
     Active Substance: PREDNISOLONE
     Indication: Renal transplant
  8. TACROLIMUS [Suspect]
     Active Substance: TACROLIMUS
     Indication: Immunosuppressant drug therapy
     Dosage: UNK
     Route: 065
  9. TACROLIMUS [Suspect]
     Active Substance: TACROLIMUS
     Indication: Renal transplant
  10. CANNABIDIOL [Interacting]
     Active Substance: CANNABIDIOL
     Indication: Pain
     Dosage: 0.6 MILLIGRAM/KILOGRAM, PER DAY
     Route: 060
  11. CANNABIDIOL [Interacting]
     Active Substance: CANNABIDIOL
     Dosage: 1.2 MILLIGRAM/KILOGRAM, PER DAY
     Route: 060
  12. CANNABIDIOL [Interacting]
     Active Substance: CANNABIDIOL
     Dosage: 1.6 MILLIGRAM/KILOGRAM, PER DAY
     Route: 060
  13. CANNABIDIOL [Concomitant]
     Active Substance: CANNABIDIOL
     Indication: Pain
     Dosage: 1.6 MILLIGRAM/KILOGRAM, PER DAY
     Route: 048
  14. PREGABALIN [Concomitant]
     Active Substance: PREGABALIN
     Indication: Pain
     Dosage: UNK
     Route: 065
  15. GABAPENTIN [Concomitant]
     Active Substance: GABAPENTIN
     Indication: Pain
     Dosage: 1200 MILLIGRAM, PER DAY
     Route: 065
  16. GABAPENTIN [Concomitant]
     Active Substance: GABAPENTIN
     Dosage: 2400 MILLIGRAM, PER DAY
     Route: 065

REACTIONS (5)
  - Drug interaction [Unknown]
  - Immunosuppressant drug level decreased [Recovered/Resolved]
  - Renal artery stenosis [Unknown]
  - Neurotoxicity [Unknown]
  - Neuralgia [Unknown]
